FAERS Safety Report 19651333 (Version 3)
Quarter: 2022Q1

REPORT INFORMATION
  Report Type: Spontaneous
  Country: US (occurrence: US)
  Receive Date: 20210803
  Receipt Date: 20220303
  Transmission Date: 20220424
  Serious: No
  Sender: FDA-Public Use
  Company Number: US-PFIZER INC-2021680467

PATIENT
  Age: 45 Year
  Sex: Female
  Weight: 84.82 kg

DRUGS (1)
  1. TOZINAMERAN [Suspect]
     Active Substance: TOZINAMERAN
     Indication: COVID-19 immunisation
     Dosage: DOSE 1, SINGLE
     Route: 030
     Dates: start: 20210608, end: 20210608

REACTIONS (4)
  - Abdominal pain upper [Unknown]
  - Menstrual disorder [Unknown]
  - Menstruation irregular [Unknown]
  - Drug hypersensitivity [Unknown]

NARRATIVE: CASE EVENT DATE: 20210608
